FAERS Safety Report 24667400 (Version 1)
Quarter: 2024Q4

REPORT INFORMATION
  Report Type: Spontaneous
  Country: US (occurrence: US)
  Receive Date: 20241126
  Receipt Date: 20241126
  Transmission Date: 20250115
  Serious: Yes (Hospitalization)
  Sender: MERCK
  Company Number: US-009507513-2411USA008573

PATIENT
  Age: 64 Year

DRUGS (3)
  1. KEYTRUDA [Suspect]
     Active Substance: PEMBROLIZUMAB
     Indication: Renal cancer stage IV
  2. AMILORIDE [Suspect]
     Active Substance: AMILORIDE
     Indication: Renal cancer stage IV
  3. LENVATINIB MESYLATE [Concomitant]
     Active Substance: LENVATINIB MESYLATE
     Indication: Renal cancer stage IV

REACTIONS (1)
  - Hypercalcaemia [Recovered/Resolved]
